FAERS Safety Report 18105041 (Version 4)
Quarter: 2020Q4

REPORT INFORMATION
  Report Type: Report from Study
  Country: US (occurrence: US)
  Receive Date: 20200803
  Receipt Date: 20201103
  Transmission Date: 20210113
  Serious: Yes (Hospitalization)
  Sender: FDA-Public Use
  Company Number: US-PFIZER INC-2020218167

PATIENT
  Age: 61 Year
  Sex: Female

DRUGS (4)
  1. FASLODEX [Concomitant]
     Active Substance: FULVESTRANT
     Dosage: UNK, MONTHLY (MONTHLY AT MD OFFICE)
  2. IBRANCE [Suspect]
     Active Substance: PALBOCICLIB
     Indication: BREAST CANCER FEMALE
     Dosage: 125 MG, CYCLIC (DAILY, 21 DAYS, OFF 7 DAYS)
     Route: 048
     Dates: start: 20200416
  3. IBRANCE [Suspect]
     Active Substance: PALBOCICLIB
     Dosage: 75 MG, CYCLIC (DAILY 21 DAYS ON ,7 DAYS OFF)
     Route: 048
     Dates: start: 20200915
  4. IBRANCE [Suspect]
     Active Substance: PALBOCICLIB
     Dosage: 100 MG, CYCLIC (DAILY, 21 DAYS, OFF 7 DAYS)
     Route: 048
     Dates: start: 20200731, end: 202009

REACTIONS (12)
  - Oropharyngeal pain [Unknown]
  - Diarrhoea [Unknown]
  - Decreased appetite [Unknown]
  - Bladder disorder [Unknown]
  - Constipation [Recovered/Resolved]
  - Blood potassium decreased [Unknown]
  - Anal fissure [Unknown]
  - Nausea [Unknown]
  - White blood cell count decreased [Unknown]
  - Asthenia [Unknown]
  - Chest pain [Unknown]
  - Cough [Unknown]

NARRATIVE: CASE EVENT DATE: 2020
